FAERS Safety Report 13571252 (Version 1)
Quarter: 2017Q2

REPORT INFORMATION
  Report Type: Spontaneous
  Country: RS (occurrence: RS)
  Receive Date: 20170523
  Receipt Date: 20170523
  Transmission Date: 20170830
  Serious: Yes (Death, Hospitalization, Other)
  Sender: FDA-Public Use
  Company Number: RS-WEST-WARD PHARMACEUTICALS CORP.-RS-H14001-17-01674

PATIENT
  Age: 56 Year
  Sex: Female

DRUGS (7)
  1. VANCOMYCIN [Suspect]
     Active Substance: VANCOMYCIN
     Indication: PNEUMONIA
     Route: 065
  2. HEMOMYCIN [Suspect]
     Active Substance: AZITHROMYCIN
     Indication: PNEUMONIA
     Route: 065
  3. LEVOMAX [Suspect]
     Active Substance: LEVOFLOXACIN
     Indication: PNEUMONIA
     Route: 065
  4. AMIKACIN [Suspect]
     Active Substance: AMIKACIN
     Indication: PNEUMONIA
     Route: 065
  5. VANCOMYCIN [Suspect]
     Active Substance: VANCOMYCIN
     Route: 048
  6. MERONEM [Suspect]
     Active Substance: MEROPENEM
     Indication: PNEUMONIA
     Route: 065
  7. ORVAGIL [Suspect]
     Active Substance: METRONIDAZOLE
     Indication: CLOSTRIDIUM DIFFICILE INFECTION
     Route: 042

REACTIONS (5)
  - Megacolon [Fatal]
  - Metabolic acidosis [Fatal]
  - Clostridium difficile infection [Fatal]
  - Drug ineffective [Fatal]
  - Multiple organ dysfunction syndrome [Fatal]
